FAERS Safety Report 24533250 (Version 1)
Quarter: 2024Q4

REPORT INFORMATION
  Report Type: Spontaneous
  Country: US (occurrence: US)
  Receive Date: 20241022
  Receipt Date: 20241022
  Transmission Date: 20250114
  Serious: Yes (Other)
  Sender: AUROBINDO
  Company Number: US-AUROBINDO-AUR-APL-2024-050352

PATIENT
  Age: 59 Year
  Sex: Male

DRUGS (10)
  1. VASOPRESSIN [Suspect]
     Active Substance: VASOPRESSIN
     Indication: Shock
     Dosage: UNK
     Route: 065
  2. ATROPINE [Suspect]
     Active Substance: ATROPINE
     Indication: Shock
     Dosage: UNK
     Route: 065
  3. CALCIUM CHLORIDE [Suspect]
     Active Substance: CALCIUM CHLORIDE
     Indication: Shock
     Dosage: UNK
     Route: 065
  4. DEXTROSE [Suspect]
     Active Substance: DEXTROSE MONOHYDRATE
     Indication: Shock
     Dosage: 5 PERCENT
     Route: 041
  5. EPINEPHRINE [Suspect]
     Active Substance: EPINEPHRINE
     Indication: Shock
     Dosage: UNK
     Route: 065
  6. GLUCAGON [Suspect]
     Active Substance: GLUCAGON
     Indication: Shock
     Dosage: UNK
     Route: 065
  7. INSULIN ASPART [Suspect]
     Active Substance: INSULIN ASPART
     Indication: Shock
     Dosage: 1 MICROGRAM/KILOGRAM, EVERY HOUR (INCREASED FROM 1U/KG/HR TO 6 U/KG/HR AT A RATE OF 660 UNITS/HOUR )
     Route: 041
  8. INSULIN ASPART [Suspect]
     Active Substance: INSULIN ASPART
     Dosage: INCREASED FROM 1U/KG/HR TO 6 U/KG/HR AT A RATE OF 660 UNITS/HOUR
     Route: 041
  9. FAT EMULSION NOS [Suspect]
     Active Substance: EGG PHOSPHOLIPIDS\SAFFLOWER OIL\SOYBEAN OIL
     Indication: Shock
     Dosage: 250 MILLILITER
     Route: 040
  10. NOREPINEPHRINE [Suspect]
     Active Substance: NOREPINEPHRINE\NOREPINEPHRINE BITARTRATE
     Indication: Shock
     Dosage: UNK
     Route: 065

REACTIONS (1)
  - Drug ineffective [Unknown]
